FAERS Safety Report 6727743-9 (Version None)
Quarter: 2010Q2

REPORT INFORMATION
  Report Type: 
  Country: None (occurrence: None)
  Receive Date: 20100512
  Receipt Date: 20100428
  Transmission Date: 20101027
  Serious: No
  Sender: FDA-Public Use
  Company Number: 002726

PATIENT
  Sex: Male
  Weight: 80 kg

DRUGS (2)
  1. VIMPAT [Suspect]
     Indication: EPILEPSY
     Dosage: 200 MG BID
     Dates: start: 20081101, end: 20091108
  2. LUMINAL /00023201/ [Concomitant]

REACTIONS (1)
  - CARDIAC FAILURE [None]
